FAERS Safety Report 4755398-1 (Version None)
Quarter: 2005Q3

REPORT INFORMATION
  Report Type: 
  Country: None (occurrence: None)
  Receive Date: 20050826
  Receipt Date: 20041129
  Transmission Date: 20060218
  Serious: Yes (Hospitalization, Other)
  Sender: FDA-Public Use
  Company Number: USA-2003-0006085

PATIENT
  Age: 25 Year
  Sex: Male

DRUGS (1)
  1. OXYCONTIN [Suspect]

REACTIONS (4)
  - APNOEA [None]
  - DRUG ABUSER [None]
  - LOSS OF CONSCIOUSNESS [None]
  - OVERDOSE [None]
